FAERS Safety Report 5918521-9 (Version None)
Quarter: 2008Q4

REPORT INFORMATION
  Report Type: 
  Country: None (occurrence: None)
  Receive Date: 20081015
  Receipt Date: 20081006
  Transmission Date: 20090506
  Serious: Yes (Hospitalization, Other)
  Sender: FDA-Public Use
  Company Number: SE-JNJFOC-20080906864

PATIENT
  Age: 84 Year
  Sex: Female

DRUGS (5)
  1. REMICADE [Suspect]
     Indication: RHEUMATOID ARTHRITIS
     Route: 042
  2. FUROSEMID [Suspect]
     Indication: DRUG USE FOR UNKNOWN INDICATION
     Route: 048
  3. IMUREL [Concomitant]
  4. ASPIRIN [Concomitant]
  5. DIGOXIN [Concomitant]

REACTIONS (2)
  - LARYNGEAL CANCER [None]
  - LIP AND/OR ORAL CAVITY CANCER [None]
